FAERS Safety Report 24768066 (Version 7)
Quarter: 2025Q3

REPORT INFORMATION
  Report Type: Spontaneous
  Country: CA (occurrence: CA)
  Receive Date: 20241223
  Receipt Date: 20250730
  Transmission Date: 20251021
  Serious: Yes (Other)
  Sender: PFIZER
  Company Number: CA-PFIZER INC-202400329488

PATIENT
  Age: 79 Year
  Sex: Male

DRUGS (4)
  1. VELSIPITY [Suspect]
     Active Substance: ETRASIMOD ARGININE
     Indication: Colitis ulcerative
     Dosage: 2 MG, 1X/DAY
     Route: 048
     Dates: start: 20241217
  2. VELSIPITY [Suspect]
     Active Substance: ETRASIMOD ARGININE
     Route: 048
  3. SULFASALAZINE [Concomitant]
     Active Substance: SULFASALAZINE
     Indication: Colitis ulcerative
     Dates: end: 202412
  4. SULFASALAZINE [Concomitant]
     Active Substance: SULFASALAZINE
     Dates: start: 20241218

REACTIONS (8)
  - Depressed level of consciousness [Unknown]
  - Dizziness [Unknown]
  - Drug ineffective [Unknown]
  - Headache [Unknown]
  - Feeling hot [Unknown]
  - Chills [Unknown]
  - Asthenia [Unknown]
  - Condition aggravated [Recovered/Resolved]

NARRATIVE: CASE EVENT DATE: 20241217
